FAERS Safety Report 9375119 (Version 3)
Quarter: 2013Q4

REPORT INFORMATION
  Report Type: Spontaneous
  Country: BR (occurrence: BR)
  Receive Date: 20130628
  Receipt Date: 20131008
  Transmission Date: 20140711
  Serious: Yes (Life-Threatening, Hospitalization)
  Sender: FDA-Public Use
  Company Number: BR-ELI_LILLY_AND_COMPANY-BR201306005543

PATIENT
  Age: 75 Year
  Sex: Female

DRUGS (1)
  1. CYMBALTA [Suspect]
     Dosage: 30 MG, UNKNOWN
     Route: 065

REACTIONS (5)
  - Respiratory failure [Unknown]
  - Hyponatraemia [Recovered/Resolved]
  - Nosocomial infection [Unknown]
  - Dehydration [Unknown]
  - Vomiting [Unknown]
